FAERS Safety Report 8548160 (Version 2)
Quarter: 2013Q2

REPORT INFORMATION
  Report Type: Spontaneous
  Country: US (occurrence: None)
  Receive Date: 20120315
  Receipt Date: 20120426
  Transmission Date: 20140414
  Serious: Yes (Other)
  Sender: FDA-Public Use
  Company Number: PHHY2011US44219

PATIENT
  Age: 42 Year
  Sex: Female

DRUGS (6)
  1. GILENYA [Suspect]
     Indication: MULTIPLE SCLEROSIS
     Dosage: 0.5 MG QD, ORAL
     Route: 048
     Dates: start: 20110517
  2. LEXAPRO (ESCITALOPRAM OXALATE) [Concomitant]
  3. NEXIUM (ESOMEPRAZOLE MAGNESIUM) [Concomitant]
  4. CALCIUM [Concomitant]
  5. XANAX (ALPRAZOLAM) [Concomitant]
  6. OXYTROL (OXYBUTYNIN) [Concomitant]

REACTIONS (4)
  - FLATULENCE [None]
  - Yellow skin [None]
  - Eye disorder [None]
  - Nausea [None]
